FAERS Safety Report 5548226-8 (Version None)
Quarter: 2007Q4

REPORT INFORMATION
  Report Type: 
  Country: None (occurrence: None)
  Receive Date: 20071206
  Receipt Date: 20071128
  Transmission Date: 20080405
  Serious: Yes (Other)
  Sender: FDA-Public Use
  Company Number: 2007AL002107

PATIENT
  Age: 32 Year
  Sex: Female

DRUGS (4)
  1. CITALOPRAM HYDROBROMIDE [Suspect]
     Indication: DEPRESSION
     Dosage: 20  MG; BID; PO
     Route: 048
     Dates: start: 20050501, end: 20070128
  2. CLINDAMYCIN HCL [Concomitant]
  3. SERETIDE [Concomitant]
  4. ERYTHROMYCIN [Concomitant]

REACTIONS (3)
  - IMPAIRED DRIVING ABILITY [None]
  - VISUAL DISTURBANCE [None]
  - VISUAL FIELD DEFECT [None]
